FAERS Safety Report 4355566-7 (Version None)
Quarter: 2004Q2

REPORT INFORMATION
  Report Type: 
  Country: None (occurrence: None)
  Receive Date: 20040505
  Receipt Date: 20040423
  Transmission Date: 20050107
  Serious: Yes (Life-Threatening, Hospitalization)
  Sender: FDA-Public Use
  Company Number: 04P-066-0258216-00

PATIENT
  Age: 15 Year
  Sex: Female

DRUGS (4)
  1. REDUCTIL 10MG (MERIDIAN) (SIBUTRAMINE) (SIBUTRAMINE) [Suspect]
     Dosage: 10MG, 14 IN 1 D, PER ORAL
     Route: 048
  2. ASPIRIN [Suspect]
     Dosage: 500 MG, 21 IN 1 D; PER ORAL
     Route: 048
  3. PRESOLONE [Suspect]
     Dosage: 5 MG, 7 IN 1 D, PER ORAL
     Route: 048
  4. ACETAMINOPHEN [Suspect]
     Dosage: 500 PER, 1 IN 1 D; PER ORAL
     Route: 048

REACTIONS (4)
  - ABNORMAL BEHAVIOUR [None]
  - OVERDOSE [None]
  - POISONING [None]
  - SINUS TACHYCARDIA [None]
